FAERS Safety Report 8659406 (Version 2)
Quarter: 2012Q4

REPORT INFORMATION
  Report Type: Report from Study
  Country: CA (occurrence: CA)
  Receive Date: 20120711
  Receipt Date: 20121029
  Transmission Date: 20130627
  Serious: Yes (Life-Threatening)
  Sender: FDA-Public Use
  Company Number: CA-JNJFOC-20120700879

PATIENT
  Age: 60 None
  Sex: Female
  Weight: 73.1 kg

DRUGS (2)
  1. REMICADE [Suspect]
     Indication: CROHN^S DISEASE
     Route: 042
     Dates: start: 20090327
  2. AMOXICILLIN [Suspect]
     Indication: EAR INFECTION
     Route: 065
     Dates: start: 201205

REACTIONS (2)
  - Intestinal obstruction [Recovered/Resolved]
  - Ear infection [Recovered/Resolved]
